FAERS Safety Report 4985810-4 (Version None)
Quarter: 2006Q2

REPORT INFORMATION
  Report Type: 
  Country: None (occurrence: None)
  Receive Date: 20060421
  Receipt Date: 20060408
  Transmission Date: 20061013
  Serious: Yes (Life-Threatening, Other)
  Sender: FDA-Public Use
  Company Number: 2006048849

PATIENT
  Age: 57 Year
  Sex: Male

DRUGS (1)
  1. LATANOPROST [Suspect]
     Indication: OPEN ANGLE GLAUCOMA
     Dosage: DAILY
     Dates: start: 20060327, end: 20060401

REACTIONS (2)
  - RESPIRATORY DISORDER [None]
  - VERTIGO [None]
